FAERS Safety Report 9247002 (Version 1)
Quarter: 2013Q2

REPORT INFORMATION
  Report Type: Spontaneous
  Country: US (occurrence: US)
  Receive Date: 20130423
  Receipt Date: 20130423
  Transmission Date: 20140414
  Serious: Yes (Other)
  Sender: FDA-Public Use
  Company Number: US-RANBAXY-2013US-68008

PATIENT
  Sex: Female

DRUGS (1)
  1. ABSORICA [Suspect]
     Indication: ACNE
     Dosage: 40 MG, QD
     Route: 065

REACTIONS (1)
  - Vestibular ataxia [Unknown]
